FAERS Safety Report 4774933-0 (Version None)
Quarter: 2005Q3

REPORT INFORMATION
  Report Type: 
  Country: None (occurrence: None)
  Receive Date: 20050919
  Receipt Date: 20050910
  Transmission Date: 20060218
  Serious: Yes (Death, Hospitalization, Disabling)
  Sender: FDA-Public Use
  Company Number: 2005-07-1453

PATIENT
  Age: 40 Year
  Sex: Male

DRUGS (3)
  1. PEG-INTRON [Suspect]
     Indication: HEPATITIS C
     Dosage: 150 UG SUBCUTANEOUS
     Route: 058
     Dates: start: 20050601, end: 20050703
  2. RIBAVIRIN [Suspect]
     Indication: HEPATITIS C
     Dosage: ORAL
     Route: 048
     Dates: start: 20050601, end: 20050703
  3. EXTRA STRENGTH TYLENOL [Suspect]
     Dosage: 36 TABS
     Dates: start: 20050601, end: 20050608

REACTIONS (6)
  - ACUTE MYOCARDIAL INFARCTION [None]
  - ATRIAL FIBRILLATION [None]
  - DIALYSIS [None]
  - HEPATIC FAILURE [None]
  - HEPATORENAL SYNDROME [None]
  - NAUSEA [None]
